FAERS Safety Report 13338534 (Version 3)
Quarter: 2017Q3

REPORT INFORMATION
  Report Type: Spontaneous
  Country: KR (occurrence: KR)
  Receive Date: 20170315
  Receipt Date: 20170728
  Transmission Date: 20171127
  Serious: Yes (Other)
  Sender: FDA-Public Use
  Company Number: KR-009507513-1703KOR005847

PATIENT
  Age: 64 Year
  Sex: Female
  Weight: 58.4 kg

DRUGS (49)
  1. BESZYME [Concomitant]
     Indication: PROPHYLAXIS AGAINST GASTROINTESTINAL ULCER
     Dosage: 1 TABLET, ONCE
     Route: 048
     Dates: start: 20170109, end: 20170109
  2. ENTELON [Concomitant]
     Indication: PROPHYLAXIS
     Dosage: 150 MG(1 TABLET), BID
     Route: 048
     Dates: start: 20170105, end: 20170109
  3. NESP [Concomitant]
     Active Substance: DARBEPOETIN ALFA
     Indication: ANAEMIA PROPHYLAXIS
     Dosage: STRENGTH: 120(UNITS NOT REPORTED), 0.5 ML, ONCE
     Route: 058
     Dates: start: 20170109, end: 20170109
  4. STOGAR [Concomitant]
     Active Substance: LAFUTIDINE
     Dosage: 10 MG(1 TABLET) , BID
     Route: 048
     Dates: start: 20161214, end: 20161220
  5. ADRIAMYCIN [Concomitant]
     Active Substance: DOXORUBICIN HYDROCHLORIDE
     Dosage: 83.7 MG, ONCE, CYCLE2
     Route: 042
     Dates: start: 20161215, end: 20161215
  6. ENDOXAN [Concomitant]
     Active Substance: CYCLOPHOSPHAMIDE
     Indication: BREAST CANCER
     Dosage: 850 MG, ONCE, CYCLE 3
     Route: 042
     Dates: start: 20170105, end: 20170105
  7. DEXAMETHASONE. [Concomitant]
     Active Substance: DEXAMETHASONE
     Dosage: 4 MG, BID
     Route: 048
     Dates: start: 20161215, end: 20161219
  8. NASEA [Concomitant]
     Active Substance: RAMOSETRON HYDROCHLORIDE
     Dosage: 0.3 MG, ONCE
     Route: 042
     Dates: start: 20161124, end: 20161124
  9. NASEA [Concomitant]
     Active Substance: RAMOSETRON HYDROCHLORIDE
     Dosage: 0.3 MG, ONCE
     Route: 042
     Dates: start: 20161215, end: 20161215
  10. NASEA [Concomitant]
     Active Substance: RAMOSETRON HYDROCHLORIDE
     Indication: PROPHYLAXIS OF NAUSEA AND VOMITING
     Dosage: 0.1MG (1 TABLET), QD
     Route: 048
     Dates: start: 20170106, end: 20170108
  11. SANCUSO [Concomitant]
     Active Substance: GRANISETRON
     Dosage: STRENGTH: 80.2X66.6 MM2; 34.3 MG, ONCE
     Route: 062
     Dates: start: 20161123, end: 20161123
  12. ENTELON [Concomitant]
     Dosage: 150 MG(1 TABLET), BID
     Route: 048
     Dates: start: 20161123, end: 20161130
  13. NEUTROGIN [Concomitant]
     Active Substance: LENOGRASTIM
     Dosage: 250 MICROGRAM, ONCE
     Route: 058
     Dates: start: 20161219, end: 20161219
  14. ADRIAMYCIN [Concomitant]
     Active Substance: DOXORUBICIN HYDROCHLORIDE
     Dosage: 85 MG, ONCE, CYCLE 1
     Route: 042
     Dates: start: 20161124, end: 20161124
  15. ENDOXAN [Concomitant]
     Active Substance: CYCLOPHOSPHAMIDE
     Dosage: 837 MG, ONCE, CYCLE 2
     Route: 042
     Dates: start: 20161215, end: 20161215
  16. NASEA [Concomitant]
     Active Substance: RAMOSETRON HYDROCHLORIDE
     Dosage: 0.1MG (1 TABLET), QD
     Route: 048
     Dates: start: 20170127, end: 20170129
  17. EMEND (FOSAPREPITANT DIMEGLUMINE) [Suspect]
     Active Substance: FOSAPREPITANT DIMEGLUMINE
     Dosage: 150 MG, ONCE
     Route: 042
     Dates: start: 20170126, end: 20170126
  18. NASEA [Concomitant]
     Active Substance: RAMOSETRON HYDROCHLORIDE
     Dosage: 0.1MG (1 TABLET), QD
     Route: 048
     Dates: start: 20161216, end: 20161218
  19. SANCUSO [Concomitant]
     Active Substance: GRANISETRON
     Indication: PROPHYLAXIS
     Dosage: STRENGTH: 80.2X66.6 MM2; 34.3 MG, ONCE
     Route: 062
     Dates: start: 20170104, end: 20170104
  20. ENTELON [Concomitant]
     Dosage: 150 MG(1 TABLET), BID
     Route: 048
     Dates: start: 20170126, end: 20170131
  21. VENOFERRUM [Concomitant]
     Indication: ANAEMIA PROPHYLAXIS
     Dosage: 200 MG, ONCE
     Route: 042
     Dates: start: 20170109, end: 20170109
  22. NEUTROGIN [Concomitant]
     Active Substance: LENOGRASTIM
     Dosage: 250 MICROGRAM, ONCE
     Route: 058
     Dates: start: 20170130, end: 20170130
  23. EMEND (FOSAPREPITANT DIMEGLUMINE) [Suspect]
     Active Substance: FOSAPREPITANT DIMEGLUMINE
     Dosage: 150 MG, ONCE
     Route: 042
     Dates: start: 20161215, end: 20161215
  24. ENDOXAN [Concomitant]
     Active Substance: CYCLOPHOSPHAMIDE
     Dosage: 850 MG, ONCE, CYCLE 4
     Route: 042
     Dates: start: 20170126, end: 20170126
  25. ENDOXAN [Concomitant]
     Active Substance: CYCLOPHOSPHAMIDE
     Dosage: 930 MG, ONCE, CYCLE 1
     Route: 042
     Dates: start: 20161124, end: 20161124
  26. NASEA [Concomitant]
     Active Substance: RAMOSETRON HYDROCHLORIDE
     Dosage: 0.3 MG, ONCE
     Route: 042
     Dates: start: 20170126, end: 20170126
  27. SANCUSO [Concomitant]
     Active Substance: GRANISETRON
     Dosage: STRENGTH: 80.2X66.6 MM2; 34.3 MG, ONCE
     Route: 062
     Dates: start: 20170125, end: 20170125
  28. CARDIOXANE [Concomitant]
     Active Substance: DEXRAZOXANE HYDROCHLORIDE
     Indication: PROPHYLAXIS
     Dosage: 1 G, ONCE
     Route: 042
     Dates: start: 20170105, end: 20170105
  29. CARDIOXANE [Concomitant]
     Active Substance: DEXRAZOXANE HYDROCHLORIDE
     Dosage: 1 G, ONCE
     Route: 042
     Dates: start: 20170126, end: 20170126
  30. NEUTROGIN [Concomitant]
     Active Substance: LENOGRASTIM
     Indication: ANAEMIA PROPHYLAXIS
     Dosage: 250 MICROGRAM, ONCE
     Route: 058
     Dates: start: 20170109, end: 20170109
  31. EMEND (FOSAPREPITANT DIMEGLUMINE) [Suspect]
     Active Substance: FOSAPREPITANT DIMEGLUMINE
     Indication: PROPHYLAXIS OF NAUSEA AND VOMITING
     Dosage: 150 MG, ONCE
     Route: 042
     Dates: start: 20161124, end: 20161124
  32. EMEND (FOSAPREPITANT DIMEGLUMINE) [Suspect]
     Active Substance: FOSAPREPITANT DIMEGLUMINE
     Dosage: 150 MG, ONCE
     Route: 042
     Dates: start: 20170105, end: 20170105
  33. ADRIAMYCIN [Concomitant]
     Active Substance: DOXORUBICIN HYDROCHLORIDE
     Indication: BREAST CANCER
     Dosage: 85 MG, ONCE, CYCLE 3
     Route: 042
     Dates: start: 20170105, end: 20170105
  34. DEXAMETHASONE. [Concomitant]
     Active Substance: DEXAMETHASONE
     Indication: PROPHYLAXIS OF NAUSEA AND VOMITING
     Dosage: 4 MG, BID
     Route: 048
     Dates: start: 20170105, end: 20170108
  35. DEXAMETHASONE. [Concomitant]
     Active Substance: DEXAMETHASONE
     Dosage: 4 MG, BID
     Route: 048
     Dates: start: 20161126, end: 20161126
  36. NASEA [Concomitant]
     Active Substance: RAMOSETRON HYDROCHLORIDE
     Dosage: 0.3 MG, QD
     Route: 042
     Dates: start: 20161110, end: 20161112
  37. NASEA [Concomitant]
     Active Substance: RAMOSETRON HYDROCHLORIDE
     Dosage: 0.1MG (1 TABLET), QD
     Route: 048
     Dates: start: 20161125, end: 20161127
  38. SANCUSO [Concomitant]
     Active Substance: GRANISETRON
     Dosage: STRENGTH: 80.2X66.6 MM2; 34.3 MG, ONCE
     Route: 062
     Dates: start: 20161214, end: 20161214
  39. ENTELON [Concomitant]
     Dosage: 150 MG(1 TABLET), BID
     Route: 048
     Dates: start: 20161214, end: 20161220
  40. ENTELON [Concomitant]
     Dosage: 150 MG(1 TABLET), BID
     Route: 048
     Dates: start: 20161110, end: 20161115
  41. NESP [Concomitant]
     Active Substance: DARBEPOETIN ALFA
     Dosage: STRENGTH: 120 (UNITS NOT REPORTED), 0.5 ML, ONCE
     Route: 058
     Dates: start: 20170130, end: 20170130
  42. STOGAR [Concomitant]
     Active Substance: LAFUTIDINE
     Dosage: 10 MG(1 TABLET) , BID
     Route: 048
     Dates: start: 20170126, end: 20170131
  43. ADRIAMYCIN [Concomitant]
     Active Substance: DOXORUBICIN HYDROCHLORIDE
     Dosage: 85 MG, ONCE, CYCLE 4
     Route: 042
     Dates: start: 20170126, end: 20170126
  44. DEXAMETHASONE. [Concomitant]
     Active Substance: DEXAMETHASONE
     Dosage: 4 MG, BID
     Route: 048
     Dates: start: 20170126, end: 20170129
  45. NASEA [Concomitant]
     Active Substance: RAMOSETRON HYDROCHLORIDE
     Indication: PROPHYLAXIS OF NAUSEA AND VOMITING
     Dosage: 0.3 MG, ONCE
     Route: 042
     Dates: start: 20170105, end: 20170105
  46. CARDIOXANE [Concomitant]
     Active Substance: DEXRAZOXANE HYDROCHLORIDE
     Dosage: 1 G, ONCE
     Route: 042
     Dates: start: 20161215, end: 20161215
  47. CARDIOXANE [Concomitant]
     Active Substance: DEXRAZOXANE HYDROCHLORIDE
     Dosage: 1 G, ONCE
     Route: 042
     Dates: start: 20161124, end: 20161124
  48. STOGAR [Concomitant]
     Active Substance: LAFUTIDINE
     Indication: PROPHYLAXIS AGAINST GASTROINTESTINAL ULCER
     Dosage: 10 MG(1 TABLET) , BID
     Route: 048
     Dates: start: 20170105, end: 20170109
  49. STOGAR [Concomitant]
     Active Substance: LAFUTIDINE
     Dosage: 10 MG(1 TABLET) , BID
     Route: 048
     Dates: start: 20161124, end: 20161130

REACTIONS (1)
  - Abscess limb [Recovered/Resolved]

NARRATIVE: CASE EVENT DATE: 20170116
